FAERS Safety Report 4715476-X (Version None)
Quarter: 2005Q3

REPORT INFORMATION
  Report Type: 
  Country: None (occurrence: None)
  Receive Date: 20050713
  Receipt Date: 20050701
  Transmission Date: 20060218
  Serious: Yes (Hospitalization)
  Sender: FDA-Public Use
  Company Number: KII-2005-0017345

PATIENT
  Age: 58 Year
  Sex: Male

DRUGS (3)
  1. MORPHINE SULFATE [Suspect]
     Dosage: ORAL
     Route: 048
  2. AMITRIPTYLINE HCL [Suspect]
     Dosage: ORAL
     Route: 048
  3. ALPRAZOLAM [Suspect]
     Dosage: ORAL
     Route: 048

REACTIONS (5)
  - DEPRESSED LEVEL OF CONSCIOUSNESS [None]
  - DISORIENTATION [None]
  - INTENTIONAL MISUSE [None]
  - MULTIPLE DRUG OVERDOSE [None]
  - SOMNOLENCE [None]
